FAERS Safety Report 8541221-6 (Version None)
Quarter: 2012Q3

REPORT INFORMATION
  Report Type: 
  Country: None (occurrence: None)
  Receive Date: 20120726
  Receipt Date: 20120717
  Transmission Date: 20120928
  Serious: Yes (Other)
  Sender: FDA-Public Use
  Company Number: US-PFIZER INC-2012172757

PATIENT
  Sex: Female
  Weight: 63.492 kg

DRUGS (1)
  1. ROBITUSSIN PEAK COLD NIGHTTIME MULTI-SYMPTOM COLD [Suspect]
     Indication: NASOPHARYNGITIS
     Dosage: 1 TEASPOON (5 ML) 1X/DAY
     Route: 048
     Dates: start: 20120715, end: 20120715

REACTIONS (4)
  - ABNORMAL DREAMS [None]
  - EUPHORIC MOOD [None]
  - CHEST INJURY [None]
  - FALL [None]
